FAERS Safety Report 8573156-7 (Version None)
Quarter: 2012Q3

REPORT INFORMATION
  Report Type: 
  Country: None (occurrence: None)
  Receive Date: 20120806
  Receipt Date: 20120727
  Transmission Date: 20120928
  Serious: Yes (Other)
  Sender: FDA-Public Use
  Company Number: US-BAYER-2012-076531

PATIENT
  Age: 43 Year
  Sex: Female

DRUGS (8)
  1. ZYRTEC [Concomitant]
     Dosage: 10 MG TABLET
     Dates: start: 20050613, end: 20050830
  2. OMEPRAZOLE [Concomitant]
     Dosage: 20 MG CAPSULE
     Dates: start: 20050716, end: 20050819
  3. MULTI-VITAMIN [Concomitant]
  4. YASMIN [Suspect]
     Indication: DYSFUNCTIONAL UTERINE BLEEDING
  5. LEXAPRO [Concomitant]
     Dosage: 20 MG DAILY
  6. BECONASE AQ [Concomitant]
     Dosage: 0.042% SPRAY
     Dates: start: 20050831
  7. YASMIN [Suspect]
     Indication: CONTRACEPTION
  8. HYDROCODONE BITARTRATE + ACETAMINOPHEN [Concomitant]
     Dosage: 5-500 TABLET
     Dates: start: 20050801, end: 20050901

REACTIONS (1)
  - DEEP VEIN THROMBOSIS [None]
